FAERS Safety Report 14744498 (Version 1)
Quarter: 2018Q2

REPORT INFORMATION
  Report Type: Spontaneous
  Country: US (occurrence: US)
  Receive Date: 20180405
  Receipt Date: 20180405
  Transmission Date: 20180711
  Serious: Yes (Disabling, Other)
  Sender: FDA-Public Use
  Company Number: None

PATIENT
  Age: 54 Year
  Sex: Male
  Weight: 74.25 kg

DRUGS (3)
  1. FLOVENT HFA [Suspect]
     Active Substance: FLUTICASONE PROPIONATE
     Indication: BRONCHITIS
     Dates: start: 20161208, end: 20170208
  2. VENTOLIN [Concomitant]
     Active Substance: ALBUTEROL SULFATE
  3. FLOVENT HFA [Suspect]
     Active Substance: FLUTICASONE PROPIONATE
     Indication: ASTHMA
     Dates: start: 20161208, end: 20170208

REACTIONS (8)
  - Malaise [None]
  - Product container issue [None]
  - Headache [None]
  - Mood altered [None]
  - Blood pressure increased [None]
  - Insomnia [None]
  - Stress [None]
  - Incorrect dose administered [None]

NARRATIVE: CASE EVENT DATE: 20161208
